FAERS Safety Report 9302624 (Version 2)
Quarter: 2013Q2

REPORT INFORMATION
  Report Type: Spontaneous
  Country: US (occurrence: US)
  Receive Date: 20130522
  Receipt Date: 20130610
  Transmission Date: 20140414
  Serious: No
  Sender: FDA-Public Use
  Company Number: US-009507513-1305USA011854

PATIENT
  Age: 49 Year
  Sex: Female

DRUGS (3)
  1. PEG-INTRON [Suspect]
     Indication: HEPATITIS C
     Dosage: QW. 150 MCG/0.5ML
     Route: 058
     Dates: start: 20130512
  2. REBETOL [Suspect]
     Indication: HEPATITIS C
     Dosage: UNK
     Route: 048
     Dates: start: 20130512
  3. TELAPREVIR [Suspect]
     Indication: HEPATITIS C
     Dosage: UNK
     Route: 065
     Dates: start: 20130512

REACTIONS (8)
  - Injection site reaction [Unknown]
  - Influenza like illness [Unknown]
  - Thirst [Unknown]
  - Fatigue [Unknown]
  - Injection site reaction [Unknown]
  - Influenza like illness [Unknown]
  - Arthralgia [Not Recovered/Not Resolved]
  - Injection site erythema [Unknown]
